FAERS Safety Report 9041395 (Version 1)
Quarter: 2013Q1

REPORT INFORMATION
  Report Type: Report from Study
  Country: US (occurrence: US)
  Receive Date: 20130129
  Receipt Date: 20130129
  Transmission Date: 20140127
  Serious: No
  Sender: FDA-Public Use
  Company Number: US-ABBOTT-12P-163-0901372-00

PATIENT
  Age: 28 Year
  Sex: Female
  Weight: 58.11 kg

DRUGS (15)
  1. HUMIRA 40 MG/ 0.8 ML PRE-FILLED SYRINGE [Suspect]
     Indication: CROHN^S DISEASE
     Dates: start: 20110401, end: 20110930
  2. PRENATAL VITAMINS [Concomitant]
     Indication: PRODUCT USED FOR UNKNOWN INDICATION
     Dosage: 1 PILL
     Route: 048
     Dates: start: 20110401, end: 20111224
  3. FISH OIL [Concomitant]
     Indication: PRODUCT USED FOR UNKNOWN INDICATION
     Dosage: 1 PILL
     Route: 048
     Dates: start: 20110401, end: 20111224
  4. 6-MP [Concomitant]
     Indication: CROHN^S DISEASE
     Route: 048
     Dates: start: 20110401, end: 20110930
  5. PREDNISONE [Concomitant]
     Indication: CROHN^S DISEASE
     Route: 048
     Dates: start: 20111001, end: 20111006
  6. PREDNISONE [Concomitant]
     Route: 048
     Dates: start: 20111007, end: 20111011
  7. PREDNISONE [Concomitant]
     Route: 048
     Dates: start: 20111012, end: 20111019
  8. PREDNISONE [Concomitant]
     Route: 048
     Dates: start: 20111020, end: 20111224
  9. ESTRADIOL [Concomitant]
     Indication: IN VITRO FERTILISATION
     Dosage: 2 PILLS
     Route: 048
     Dates: start: 20110401, end: 20110816
  10. FERTILITY MEDICATION NOS [Concomitant]
     Indication: IN VITRO FERTILISATION
  11. TUMS [Concomitant]
     Indication: GASTROOESOPHAGEAL REFLUX DISEASE
     Dosage: 4.5 PILLS
     Route: 048
     Dates: start: 20110801, end: 20110927
  12. PEPCID [Concomitant]
     Indication: GASTROOESOPHAGEAL REFLUX DISEASE
     Route: 048
     Dates: start: 20110928, end: 20111224
  13. TYLENOL [Concomitant]
     Indication: PRODUCT USED FOR UNKNOWN INDICATION
     Dosage: 2 PILL 2.5 TOTAL
     Route: 048
     Dates: start: 20110401, end: 20111028
  14. TYLENOL EXTRA STRENGTH [Concomitant]
     Indication: BACK PAIN
     Dosage: 2 PILLS
     Route: 048
     Dates: start: 20111029, end: 20111206
  15. FOLIC ACID [Concomitant]
     Indication: PRODUCT USED FOR UNKNOWN INDICATION
     Route: 048
     Dates: start: 20110429, end: 20111224

REACTIONS (6)
  - Respiratory tract infection [Unknown]
  - Respiratory tract infection [Unknown]
  - Hyperthermia [Unknown]
  - Gastrooesophageal reflux disease [Unknown]
  - Back pain [Unknown]
  - Nasopharyngitis [Unknown]
